FAERS Safety Report 12013355 (Version 1)
Quarter: 2016Q1

REPORT INFORMATION
  Report Type: Report from Study
  Country: CO (occurrence: CO)
  Receive Date: 20160205
  Receipt Date: 20160205
  Transmission Date: 20160526
  Serious: Yes (Other)
  Sender: FDA-Public Use
  Company Number: CO-EMD SERONO-8066159

PATIENT
  Age: 14 Year
  Sex: Female

DRUGS (1)
  1. SAIZEN [Suspect]
     Active Substance: SOMATROPIN
     Indication: GROWTH HORMONE DEFICIENCY
     Route: 058
     Dates: end: 201508

REACTIONS (7)
  - Cystitis [Recovered/Resolved]
  - Swelling face [Recovered/Resolved]
  - Headache [Recovered/Resolved]
  - Peripheral swelling [Recovered/Resolved]
  - Dyspnoea [Recovered/Resolved]
  - Gastrointestinal oedema [Recovered/Resolved]
  - Constipation [Recovered/Resolved]

NARRATIVE: CASE EVENT DATE: 201508
